FAERS Safety Report 18258751 (Version 3)
Quarter: 2020Q4

REPORT INFORMATION
  Report Type: Report from Study
  Country: US (occurrence: US)
  Receive Date: 20200911
  Receipt Date: 20201012
  Transmission Date: 20210113
  Serious: Yes (Other)
  Sender: FDA-Public Use
  Company Number: US-GILEAD-2020-0494301

PATIENT
  Age: 46 Year
  Sex: Male

DRUGS (4)
  1. SILDENAFIL. [Concomitant]
     Active Substance: SILDENAFIL
  2. FUROSEMIDE. [Concomitant]
     Active Substance: FUROSEMIDE
  3. VELETRI [Concomitant]
     Active Substance: EPOPROSTENOL
  4. AMBRISENTAN [Suspect]
     Active Substance: AMBRISENTAN
     Indication: PULMONARY HYPERTENSION
     Dosage: 10 MG, QD
     Route: 065
     Dates: start: 20200206

REACTIONS (13)
  - Headache [Not Recovered/Not Resolved]
  - Pain in jaw [Not Recovered/Not Resolved]
  - Neoplasm [Unknown]
  - Myalgia [Unknown]
  - Dyspnoea [Unknown]
  - Pain in extremity [Not Recovered/Not Resolved]
  - Fluid retention [Not Recovered/Not Resolved]
  - Flushing [Unknown]
  - Dizziness [Not Recovered/Not Resolved]
  - Fatigue [Unknown]
  - Pulmonary hypertension [Recovering/Resolving]
  - Diarrhoea [Not Recovered/Not Resolved]
  - Arthralgia [Unknown]
